FAERS Safety Report 21250389 (Version 1)
Quarter: 2022Q3

REPORT INFORMATION
  Report Type: Report from Study
  Country: US (occurrence: US)
  Receive Date: 20220824
  Receipt Date: 20220824
  Transmission Date: 20221027
  Serious: Yes (Death, Life-Threatening)
  Sender: FDA-Public Use
  Company Number: US-ABBVIE-22K-163-4514569-00

PATIENT
  Sex: Male

DRUGS (1)
  1. VENCLEXTA [Suspect]
     Active Substance: VENETOCLAX
     Indication: Plasma cell myeloma
     Dosage: 2 TABLETS BY MOUTH ONCE DAILY
     Route: 048
     Dates: end: 20220807

REACTIONS (2)
  - Death [Fatal]
  - Drug ineffective [Unknown]
